FAERS Safety Report 4865987-1 (Version None)
Quarter: 2005Q4

REPORT INFORMATION
  Report Type: 
  Country: None (occurrence: None)
  Receive Date: 20051226
  Receipt Date: 20051221
  Transmission Date: 20060501
  Serious: Yes (Death)
  Sender: FDA-Public Use
  Company Number: US-SANOFI-SYNTHELABO-F03200500192

PATIENT
  Age: 64 Year
  Sex: Male
  Weight: 34.5 kg

DRUGS (6)
  1. OXALIPLATIN [Suspect]
     Indication: GASTRIC CANCER
     Route: 042
     Dates: start: 20051213, end: 20051213
  2. FUDR [Suspect]
     Indication: GASTRIC CANCER
     Route: 042
     Dates: start: 20051213, end: 20051213
  3. TAXOTERE [Suspect]
     Indication: GASTRIC CANCER
     Route: 042
     Dates: start: 20051213, end: 20051213
  4. LEUCOVORIN CALCIUM [Suspect]
     Indication: GASTRIC CANCER
     Route: 042
     Dates: start: 20051213, end: 20051213
  5. ANTIEMETICS [Concomitant]
     Dosage: UNK
     Route: 065
  6. ANTIDIARRHEALS [Concomitant]
     Dosage: UNK
     Route: 065

REACTIONS (6)
  - ABDOMINAL PAIN [None]
  - ANOREXIA [None]
  - BLOOD PRESSURE DECREASED [None]
  - DEATH [None]
  - FLATULENCE [None]
  - GENERAL PHYSICAL HEALTH DETERIORATION [None]
